FAERS Safety Report 6313269-3 (Version None)
Quarter: 2009Q3

REPORT INFORMATION
  Report Type: 
  Country: None (occurrence: None)
  Receive Date: 20090818
  Receipt Date: 20090807
  Transmission Date: 20100115
  Serious: Yes (Congenital Anomaly)
  Sender: FDA-Public Use
  Company Number: A0681283A

PATIENT
  Sex: Female
  Weight: 3.6 kg

DRUGS (6)
  1. PAXIL [Suspect]
     Indication: DEPRESSION
     Dosage: 25MG PER DAY
  2. PAXIL [Suspect]
  3. KLONOPIN [Concomitant]
     Indication: ANXIETY
  4. DEMEROL [Concomitant]
  5. PERCOCET [Concomitant]
  6. VITAMIN TAB [Concomitant]

REACTIONS (3)
  - AORTIC VALVE INCOMPETENCE [None]
  - DRUG EXPOSURE DURING PREGNANCY [None]
  - VENTRICULAR SEPTAL DEFECT [None]
